FAERS Safety Report 6785256-2 (Version None)
Quarter: 2010Q2

REPORT INFORMATION
  Report Type: 
  Country: None (occurrence: None)
  Receive Date: 20100622
  Receipt Date: 20100618
  Transmission Date: 20101027
  Serious: Yes (Death, Hospitalization)
  Sender: FDA-Public Use
  Company Number: US-BRISTOL-MYERS SQUIBB COMPANY-15146988

PATIENT
  Age: 64 Year
  Sex: Male

DRUGS (15)
  1. CARBOPLATIN [Suspect]
     Indication: NON-SMALL CELL LUNG CANCER
     Dosage: DISCONTINUED ON 09JUN10
     Dates: start: 20100603, end: 20100603
  2. ABRAXANE [Suspect]
     Indication: NON-SMALL CELL LUNG CANCER
     Dosage: DISCONTINUED ON 09JUN10
     Dates: start: 20100603, end: 20100603
  3. LORAZEPAM [Concomitant]
  4. SPIRIVA [Concomitant]
  5. LISINOPRIL [Concomitant]
  6. LOPRESSOR [Concomitant]
  7. ASPIRIN [Concomitant]
  8. IMDUR [Concomitant]
  9. ZOFRAN [Concomitant]
  10. NAPROSYN [Concomitant]
  11. NEXIUM [Concomitant]
  12. ALBUTEROL [Concomitant]
  13. SYMBICORT [Concomitant]
  14. COMBIVENT [Concomitant]
  15. LIPITOR [Concomitant]

REACTIONS (1)
  - DEHYDRATION [None]
